FAERS Safety Report 22238680 (Version 1)
Quarter: 2023Q2

REPORT INFORMATION
  Report Type: Spontaneous
  Country: US (occurrence: None)
  Receive Date: 20230420
  Receipt Date: 20230420
  Transmission Date: 20230722
  Serious: Yes (Other)
  Sender: FDA-Public Use
  Company Number: None

PATIENT
  Age: 56 Year
  Sex: Female
  Weight: 94.5 kg

DRUGS (33)
  1. LEVOCETIRIZINE DIHYDROCHLORIDE [Suspect]
     Active Substance: LEVOCETIRIZINE DIHYDROCHLORIDE
     Indication: Hypersensitivity
     Dosage: FREQUENCY : AT BEDTIME;?
     Route: 048
  2. LEVOCETIRIZINE DIHYDROCHLORIDE [Suspect]
     Active Substance: LEVOCETIRIZINE DIHYDROCHLORIDE
     Indication: Seasonal allergy
  3. SOLIRIS [Concomitant]
     Active Substance: ECULIZUMAB
  4. CEFADROXIL [Concomitant]
     Active Substance: CEFADROXIL
  5. MYCOPHENOLIC ACID [Concomitant]
     Active Substance: MYCOPHENOLIC ACID
  6. METFORMIN [Concomitant]
     Active Substance: METFORMIN HYDROCHLORIDE
  7. FLUOXETINE [Concomitant]
     Active Substance: FLUOXETINE HYDROCHLORIDE
  8. CLONAZEPAM [Concomitant]
     Active Substance: CLONAZEPAM
  9. PYRIDOSTIGMINE [Concomitant]
     Active Substance: PYRIDOSTIGMINE
  10. XIIDRA [Concomitant]
     Active Substance: LIFITEGRAST
  11. ESOMEPRAZOLE [Concomitant]
     Active Substance: ESOMEPRAZOLE
  12. ATORVASTATIN [Concomitant]
     Active Substance: ATORVASTATIN
  13. BUSPIRONE [Concomitant]
     Active Substance: BUSPIRONE HYDROCHLORIDE
  14. Domeperidone [Concomitant]
  15. AZELASTINE [Concomitant]
     Active Substance: AZELASTINE
  16. KETOCONAZOLE [Concomitant]
     Active Substance: KETOCONAZOLE
  17. ADVAIR DISKUS [Concomitant]
     Active Substance: FLUTICASONE PROPIONATE\SALMETEROL XINAFOATE
  18. NORCO [Concomitant]
     Active Substance: ACETAMINOPHEN\HYDROCODONE BITARTRATE
  19. Bitalbital [Concomitant]
  20. MODAFINIL [Concomitant]
     Active Substance: MODAFINIL
  21. UBRELVY [Concomitant]
     Active Substance: UBROGEPANT
  22. ALEVE [Concomitant]
     Active Substance: NAPROXEN SODIUM
  23. TYLENOL [Concomitant]
     Active Substance: ACETAMINOPHEN
  24. VITAMIN D3 [Concomitant]
     Active Substance: CHOLECALCIFEROL
  25. MELATONIN [Concomitant]
     Active Substance: MELATONIN
  26. FOLIC ACID [Concomitant]
     Active Substance: FOLIC ACID
  27. MAGNESIUM [Concomitant]
     Active Substance: MAGNESIUM
  28. ORTHO B COMPLEX [Concomitant]
  29. IRON [Concomitant]
     Active Substance: IRON
  30. ASPIRIN [Concomitant]
     Active Substance: ASPIRIN
  31. BIOTIN [Concomitant]
     Active Substance: BIOTIN
  32. PROBIOTICS NOS [Concomitant]
     Active Substance: PROBIOTICS NOS
  33. Generic Xyzal [Concomitant]

REACTIONS (3)
  - Pruritus [None]
  - Contusion [None]
  - Agitation [None]

NARRATIVE: CASE EVENT DATE: 20230417
